FAERS Safety Report 6320212-X (Version None)
Quarter: 2009Q3

REPORT INFORMATION
  Report Type: 
  Country: None (occurrence: None)
  Receive Date: 20090822
  Receipt Date: 20081027
  Transmission Date: 20100115
  Serious: No
  Sender: FDA-Public Use
  Company Number: US-ABBOTT-08P-163-0483954-00

PATIENT
  Sex: Female

DRUGS (3)
  1. NIASPAN [Suspect]
     Indication: DRUG USE FOR UNKNOWN INDICATION
     Route: 048
     Dates: start: 20081026
  2. NIASPAN [Suspect]
     Route: 048
     Dates: start: 20081025, end: 20081025
  3. NIASPAN [Suspect]
     Route: 048
     Dates: start: 20081024, end: 20081024

REACTIONS (2)
  - ABDOMINAL DISCOMFORT [None]
  - HEART RATE INCREASED [None]
